FAERS Safety Report 5543077-2 (Version None)
Quarter: 2007Q4

REPORT INFORMATION
  Report Type: 
  Country: None (occurrence: None)
  Receive Date: 20071210
  Receipt Date: 20071128
  Transmission Date: 20080405
  Serious: Yes (Hospitalization)
  Sender: FDA-Public Use
  Company Number: JP-PFIZER INC-2007101287

PATIENT
  Age: 76 Year
  Sex: Male

DRUGS (8)
  1. EPIRUBICIN HYDROCHLORIDE [Suspect]
     Indication: BLADDER CANCER
  2. FOSAMAX [Concomitant]
     Route: 048
  3. TAKEPRON [Concomitant]
  4. IMURAN [Concomitant]
     Route: 048
  5. MUCODYNE [Concomitant]
     Route: 048
  6. MEDICON [Concomitant]
     Route: 048
  7. HOKUNALIN [Concomitant]
     Route: 062
  8. HYPEN [Concomitant]
     Route: 048

REACTIONS (1)
  - INTERSTITIAL LUNG DISEASE [None]
